FAERS Safety Report 9915355 (Version 2)
Quarter: 2014Q2

REPORT INFORMATION
  Report Type: Report from Study
  Country: FR (occurrence: FR)
  Receive Date: 20140221
  Receipt Date: 20140407
  Transmission Date: 20141212
  Serious: Yes (Other)
  Sender: FDA-Public Use
  Company Number: FR-BIOGENIDEC-2014BI015358

PATIENT
  Age: 37 Year
  Sex: Female
  Weight: 59 kg

DRUGS (2)
  1. TYSABRI [Suspect]
     Indication: MULTIPLE SCLEROSIS
     Route: 042
     Dates: start: 20080709
  2. REBIF [Concomitant]
     Indication: MULTIPLE SCLEROSIS
     Dates: start: 201009

REACTIONS (1)
  - Malignant melanoma [Recovered/Resolved]
